FAERS Safety Report 8424178-8 (Version None)
Quarter: 2012Q2

REPORT INFORMATION
  Report Type: 
  Country: None (occurrence: None)
  Receive Date: 20120608
  Receipt Date: 20120227
  Transmission Date: 20120825
  Serious: No
  Sender: FDA-Public Use
  Company Number: US-ASTRAZENECA-2012SE10348

PATIENT
  Age: 67 Year
  Sex: Female
  Weight: 47.2 kg

DRUGS (15)
  1. PREVACID [Concomitant]
     Indication: GASTROOESOPHAGEAL REFLUX DISEASE
  2. SPIRIVA [Concomitant]
  3. ASPIRIN [Concomitant]
  4. SINGULAIR [Concomitant]
  5. XANAX [Concomitant]
  6. PULMICORT [Suspect]
     Dosage: 1 MG/1 ML, ONCE DAILY
     Route: 055
  7. ASPIRIN [Concomitant]
  8. FISH OIL [Concomitant]
  9. AMATIZA [Concomitant]
  10. RAVANA [Concomitant]
  11. VITAMIN TAB [Concomitant]
  12. PROAIR HFA [Concomitant]
  13. BANTAL [Concomitant]
  14. PULMICORT [Suspect]
     Indication: ASTHMA
     Dosage: 1 MG/2 ML, TWO TIMES  A DAY
     Route: 055
  15. PREMARON [Concomitant]

REACTIONS (6)
  - DYSPHONIA [None]
  - CHEST PAIN [None]
  - DRUG INEFFECTIVE [None]
  - OFF LABEL USE [None]
  - DRY THROAT [None]
  - CHEST DISCOMFORT [None]
